FAERS Safety Report 6421658-1 (Version None)
Quarter: 2009Q4

REPORT INFORMATION
  Report Type: 
  Country: None (occurrence: None)
  Receive Date: 20091030
  Receipt Date: 20091021
  Transmission Date: 20100525
  Serious: Yes (Hospitalization)
  Sender: FDA-Public Use
  Company Number: US-JNJFOC-20091007270

PATIENT
  Sex: Female
  Weight: 113.85 kg

DRUGS (19)
  1. REMICADE [Suspect]
     Route: 042
  2. REMICADE [Suspect]
     Route: 042
  3. REMICADE [Suspect]
     Route: 042
  4. REMICADE [Suspect]
     Route: 042
  5. REMICADE [Suspect]
     Indication: RHEUMATOID ARTHRITIS
     Route: 042
  6. LASIX [Concomitant]
  7. HYDRALAZINE HCL [Concomitant]
     Route: 048
  8. LISINOPRIL [Concomitant]
     Route: 048
  9. COUMADIN [Concomitant]
     Route: 048
  10. METHOTREXATE [Concomitant]
  11. ZOCOR [Concomitant]
     Route: 048
  12. CELEBREX [Concomitant]
     Route: 048
  13. FOLIC ACID [Concomitant]
     Route: 048
  14. LYRICA [Concomitant]
     Route: 048
  15. LYRICA [Concomitant]
     Route: 048
  16. AMLODIPINE [Concomitant]
     Route: 048
  17. CLONIDINE [Concomitant]
     Route: 048
  18. HUMALOG [Concomitant]
  19. LANTUS [Concomitant]
     Dosage: 40 UNITS HS
     Route: 058

REACTIONS (5)
  - CONSTIPATION [None]
  - HAEMOGLOBIN DECREASED [None]
  - PAIN IN EXTREMITY [None]
  - SWELLING [None]
  - WEIGHT BEARING DIFFICULTY [None]
